FAERS Safety Report 9444143 (Version 1)
Quarter: 2013Q3

REPORT INFORMATION
  Report Type: Spontaneous
  Country: US (occurrence: None)
  Receive Date: 20130806
  Receipt Date: 20130806
  Transmission Date: 20140515
  Serious: Yes (Other)
  Sender: FDA-Public Use
  Company Number: None

PATIENT
  Age: 51 None
  Sex: Male
  Weight: 117.94 kg

DRUGS (5)
  1. PROAIR [Suspect]
     Indication: ASTHMA
     Dosage: 1 TO 2 PUFFS AS NESS MOUTH/INHLAER
     Route: 048
     Dates: start: 001108
  2. VENTALIN [Concomitant]
     Indication: ASTHMA
     Route: 048
  3. ALBUTEROL [Concomitant]
  4. ZYRTEC [Concomitant]
  5. ALBUTEROL [Concomitant]

REACTIONS (2)
  - Palpitations [None]
  - Dyspnoea [None]
